FAERS Safety Report 4805893-1 (Version None)
Quarter: 2005Q4

REPORT INFORMATION
  Report Type: 
  Country: None (occurrence: None)
  Receive Date: 20051021
  Receipt Date: 20051010
  Transmission Date: 20060501
  Serious: Yes (Hospitalization)
  Sender: FDA-Public Use
  Company Number: US-AMGEN-US153941

PATIENT
  Age: 85 Year
  Sex: Male

DRUGS (9)
  1. PROCRIT [Suspect]
     Indication: ANAEMIA OF MALIGNANT DISEASE
     Route: 058
     Dates: start: 20040101
  2. AVANDIA [Concomitant]
  3. LASIX [Concomitant]
  4. ALLOPURINOL [Concomitant]
  5. DOXAZOSIN [Concomitant]
  6. LISINOPRIL [Concomitant]
  7. MAVIK [Concomitant]
  8. GLUCOTROL [Concomitant]
  9. NITROGLYCERIN [Concomitant]

REACTIONS (4)
  - ASTHENIA [None]
  - CARDIAC FAILURE CONGESTIVE [None]
  - CONFUSIONAL STATE [None]
  - SOMNOLENCE [None]
